FAERS Safety Report 10233328 (Version 1)
Quarter: 2014Q2

REPORT INFORMATION
  Report Type: Report from Study
  Country: US (occurrence: US)
  Receive Date: 20140612
  Receipt Date: 20140612
  Transmission Date: 20141212
  Serious: Yes (Death, Hospitalization)
  Sender: FDA-Public Use
  Company Number: US-ACTELION-A-NJ2014-099908

PATIENT
  Age: 74 Year
  Sex: Female

DRUGS (1)
  1. TRACLEER [Suspect]
     Indication: PULMONARY ARTERIAL HYPERTENSION
     Dosage: 125 MG, BID
     Route: 048
     Dates: start: 20080403, end: 20140519

REACTIONS (6)
  - Pulmonary arterial hypertension [Fatal]
  - Disease complication [Fatal]
  - Disease progression [Fatal]
  - Mitral valve repair [Not Recovered/Not Resolved]
  - Renal failure [Recovered/Resolved]
  - Malaise [Not Recovered/Not Resolved]
